FAERS Safety Report 4692362-5 (Version None)
Quarter: 2005Q2

REPORT INFORMATION
  Report Type: 
  Country: None (occurrence: None)
  Receive Date: 20050616
  Receipt Date: 20050531
  Transmission Date: 20051028
  Serious: Yes (Hospitalization, Other)
  Sender: FDA-Public Use
  Company Number: CA_030605997

PATIENT
  Age: 11 Year
  Sex: Male
  Weight: 32 kg

DRUGS (4)
  1. HUMATROPE [Suspect]
     Indication: GROWTH HORMONE DEFICIENCY
     Dosage: 0.9 MG/6 WEEK
     Dates: start: 20020415, end: 20050503
  2. SYNTHROID [Concomitant]
  3. DILANTIN [Concomitant]
  4. ASPIRIN [Concomitant]

REACTIONS (10)
  - DEPRESSED LEVEL OF CONSCIOUSNESS [None]
  - HEADACHE [None]
  - ISCHAEMIC STROKE [None]
  - MASTOIDITIS [None]
  - MENINGIOMA [None]
  - NUCLEAR MAGNETIC RESONANCE IMAGING BRAIN ABNORMAL [None]
  - OTITIS MEDIA [None]
  - RADIATION INJURY [None]
  - SOFT TISSUE DISORDER [None]
  - VASCULITIS [None]
